FAERS Safety Report 5799311-7 (Version None)
Quarter: 2008Q3

REPORT INFORMATION
  Report Type: 
  Country: None (occurrence: None)
  Receive Date: 20080701
  Receipt Date: 20080618
  Transmission Date: 20090109
  Serious: Yes (Other)
  Sender: FDA-Public Use
  Company Number: DSU-2008-00901

PATIENT
  Age: 72 Year
  Sex: Female
  Weight: 49.8957 kg

DRUGS (4)
  1. BENICAR [Suspect]
     Indication: HYPERTENSION
     Dosage: 20 MG (20 MG,QD),PER ORAL;   10 MG (10 MG,ONE HALF 20MG TABLET QD),PER ORAL
     Route: 048
     Dates: start: 20080601, end: 20080601
  2. BENICAR [Suspect]
     Indication: HYPERTENSION
     Dosage: 20 MG (20 MG,QD),PER ORAL;   10 MG (10 MG,ONE HALF 20MG TABLET QD),PER ORAL
     Route: 048
     Dates: start: 20080601
  3. MULTI-VITAMINS [Concomitant]
  4. CALCIUM (CALCIUM)(CALCIUM) [Concomitant]

REACTIONS (3)
  - FATIGUE [None]
  - HYPOTENSION [None]
  - MALAISE [None]
